FAERS Safety Report 16856277 (Version 1)
Quarter: 2019Q3

REPORT INFORMATION
  Report Type: Spontaneous
  Country: FR (occurrence: FR)
  Receive Date: 20190926
  Receipt Date: 20190926
  Transmission Date: 20191005
  Serious: Yes (Life-Threatening)
  Sender: FDA-Public Use
  Company Number: FR-MYLANLABS-2019M1089667

PATIENT
  Age: 20 Year
  Sex: Female
  Weight: 71 kg

DRUGS (9)
  1. ATRACURIUM HOSPIRA [Suspect]
     Active Substance: ATRACURIUM BESYLATE
     Indication: INDUCTION OF ANAESTHESIA
     Dosage: 40 MILLIGRAM, TOTAL
     Route: 041
     Dates: start: 20190417, end: 20190417
  2. PROPOFOL LIPURO [Suspect]
     Active Substance: PROPOFOL
     Indication: INDUCTION OF ANAESTHESIA
     Dosage: 200 MILLIGRAM, TOTAL
     Route: 041
     Dates: start: 20190417, end: 20190417
  3. PRAZEPAM BIOGARAN [Concomitant]
     Active Substance: PRAZEPAM
     Dosage: UNK
  4. ANTADYS [Concomitant]
     Active Substance: FLURBIPROFEN
     Dosage: UNK
  5. SUFENTANIL MYLAN [Suspect]
     Active Substance: SUFENTANIL
     Indication: INDUCTION OF ANAESTHESIA
     Dosage: 20 MICROGRAM, TOTAL
     Route: 041
     Dates: start: 20190417, end: 20190417
  6. ALLERGODIL [Concomitant]
     Active Substance: AZELASTINE
     Dosage: UNK
  7. KETAMINE RENAUDIN [Suspect]
     Active Substance: KETAMINE
     Indication: INDUCTION OF ANAESTHESIA
     Dosage: 20 MILLIGRAM, TOTAL
     Route: 041
     Dates: start: 20190417, end: 20190417
  8. CHLORHEXIDINE [Suspect]
     Active Substance: CHLORHEXIDINE
     Indication: INFECTION PROPHYLAXIS
     Dosage: UNK
     Route: 003
     Dates: start: 20190417, end: 20190417
  9. DEXAMETHASONE MYLAN 4 MG/1 ML, SOLUTION INJECTABLE EN AMPOULE [Suspect]
     Active Substance: DEXAMETHASONE
     Indication: PRODUCT USED FOR UNKNOWN INDICATION
     Dosage: 8 MILLIGRAM, TOTAL
     Route: 041
     Dates: start: 20190417, end: 20190417

REACTIONS (1)
  - Anaphylactic shock [Recovered/Resolved]

NARRATIVE: CASE EVENT DATE: 20190417
